FAERS Safety Report 4357776-1 (Version None)
Quarter: 2004Q2

REPORT INFORMATION
  Report Type: 
  Country: None (occurrence: None)
  Receive Date: 20040512
  Receipt Date: 20040428
  Transmission Date: 20050107
  Serious: Yes (Other)
  Sender: FDA-Public Use
  Company Number: A0505803A

PATIENT
  Age: 61 Year
  Sex: Female

DRUGS (4)
  1. COMMIT [Suspect]
     Indication: EX-SMOKER
     Dosage: 4 MG/ SIX TIMES PER DAY/ TRANSBUCCA
     Route: 002
     Dates: start: 20040101
  2. NICORETTE [Suspect]
     Indication: EX-SMOKER
     Dosage: 2 MG/ THREE TIMES PER DAY/ TRANS
     Dates: start: 20020614
  3. COMMIT [Suspect]
     Indication: EX-SMOKER
     Dosage: 2 MG/ SIX TIMES PER DAY/ TRANSBU
     Route: 002
     Dates: start: 20021201, end: 20040101
  4. THYROID MEDICATION HORMONES [Concomitant]

REACTIONS (3)
  - CONSTIPATION [None]
  - DEPENDENCE [None]
  - DRUG INEFFECTIVE [None]
